FAERS Safety Report 14728450 (Version 4)
Quarter: 2018Q3

REPORT INFORMATION
  Report Type: Report from Study
  Country: US (occurrence: US)
  Receive Date: 20180406
  Receipt Date: 20180824
  Transmission Date: 20181010
  Serious: No
  Sender: FDA-Public Use
  Company Number: PHEH2018US013336

PATIENT
  Sex: Male
  Weight: 111.57 kg

DRUGS (2)
  1. COSENTYX [Suspect]
     Active Substance: SECUKINUMAB
     Indication: PSORIATIC ARTHROPATHY
     Dosage: 150 MG, Q2W (ONCE EVERY  TWO WEEKS)
     Route: 058
  2. COSENTYX [Suspect]
     Active Substance: SECUKINUMAB
     Dosage: 150 MG, QMO
     Route: 058
     Dates: start: 201801

REACTIONS (7)
  - Drug ineffective [Unknown]
  - Cough [Unknown]
  - Nasal congestion [Unknown]
  - Arthralgia [Unknown]
  - Psoriatic arthropathy [Unknown]
  - Back pain [Not Recovered/Not Resolved]
  - Nasopharyngitis [Unknown]
